FAERS Safety Report 6142560-9 (Version None)
Quarter: 2009Q2

REPORT INFORMATION
  Report Type: 
  Country: None (occurrence: None)
  Receive Date: 20090403
  Receipt Date: 20090324
  Transmission Date: 20091009
  Serious: Yes (Other)
  Sender: FDA-Public Use
  Company Number: NL-BAYER-200917248GPV

PATIENT
  Sex: Female

DRUGS (2)
  1. NIFEDIPINE [Suspect]
     Indication: PREMATURE LABOUR
  2. ATOSIBAN [Suspect]
     Indication: PREMATURE LABOUR

REACTIONS (1)
  - PULMONARY OEDEMA [None]
